FAERS Safety Report 25069380 (Version 1)
Quarter: 2025Q1

REPORT INFORMATION
  Report Type: Spontaneous
  Country: US (occurrence: None)
  Receive Date: 20250312
  Receipt Date: 20250312
  Transmission Date: 20250408
  Serious: Yes (unspecified)
  Sender: FDA-CTU
  Company Number: None

PATIENT
  Age: 77 Year
  Sex: Male
  Weight: 80.74 kg

DRUGS (9)
  1. ASPIRIN [Suspect]
     Active Substance: ASPIRIN
  2. OXYCODONE [Suspect]
     Active Substance: OXYCODONE
  3. PANTOPRAZOLE [Suspect]
     Active Substance: PANTOPRAZOLE
  4. ELIQUIS [Concomitant]
     Active Substance: APIXABAN
  5. GABAPENTIN [Concomitant]
     Active Substance: GABAPENTIN
  6. SPIRONOLACTONE [Concomitant]
     Active Substance: SPIRONOLACTONE
  7. TARAZOSIN [Concomitant]
     Active Substance: TERAZOSIN HYDROCHLORIDE ANHYDROUS
  8. VALSARTAN [Concomitant]
     Active Substance: VALSARTAN
  9. TRIAMCINOLONE-ACETONIDE OINTMENT [Concomitant]

REACTIONS (1)
  - Allergic reaction to excipient [None]

NARRATIVE: CASE EVENT DATE: 20241219
